FAERS Safety Report 7559306-X (Version None)
Quarter: 2011Q2

REPORT INFORMATION
  Report Type: 
  Country: None (occurrence: None)
  Receive Date: 20110613
  Receipt Date: 20110602
  Transmission Date: 20111010
  Serious: Yes (Hospitalization, Other)
  Sender: FDA-Public Use
  Company Number: 2011001998

PATIENT
  Age: 61 Year
  Sex: Male
  Weight: 108 kg

DRUGS (7)
  1. TOPROL-XL [Concomitant]
  2. CHLORPHENIRAMINE W/HYDROCODONE (CHLORPHENAMINE, HYDROCODONE) [Concomitant]
  3. LORTAB (VICODIN) [Concomitant]
  4. ERLOTINIB HYDROCHLORIDE [Suspect]
     Indication: SQUAMOUS CELL CARCINOMA OF SKIN
     Dosage: 150 MG, UID/QD, ORAL
     Route: 048
     Dates: start: 20110412, end: 20110401
  5. HYDROCODONE  (HYDROCODONE) [Concomitant]
  6. CELEXA (CITLOPRAM HYDROBROMIDE) [Concomitant]
  7. DOXYCYCLINE [Concomitant]

REACTIONS (29)
  - SYNCOPE [None]
  - RASH [None]
  - ATELECTASIS [None]
  - HYPONATRAEMIA [None]
  - HEART RATE INCREASED [None]
  - EYE PAIN [None]
  - DIPLOPIA [None]
  - VISION BLURRED [None]
  - HEPATIC STEATOSIS [None]
  - CHRONIC OBSTRUCTIVE PULMONARY DISEASE [None]
  - RENAL CYST [None]
  - LOSS OF CONSCIOUSNESS [None]
  - VISUAL ACUITY REDUCED [None]
  - ATRIAL FIBRILLATION [None]
  - PULMONARY HYPERTENSION [None]
  - CHOLELITHIASIS [None]
  - PLEURAL EFFUSION [None]
  - SQUAMOUS CELL CARCINOMA OF SKIN [None]
  - ORTHOSTATIC HYPOTENSION [None]
  - PNEUMONIA [None]
  - ANAEMIA [None]
  - SUPRAVENTRICULAR TACHYCARDIA [None]
  - HEPATIC ENZYME INCREASED [None]
  - CYST [None]
  - NEOPLASM PROGRESSION [None]
  - FATIGUE [None]
  - HYPERTENSIVE HEART DISEASE [None]
  - PANCYTOPENIA [None]
  - DIZZINESS [None]
